FAERS Safety Report 15117598 (Version 2)
Quarter: 2018Q3

REPORT INFORMATION
  Report Type: Report from Study
  Country: None (occurrence: DE)
  Receive Date: 20180706
  Receipt Date: 20180716
  Transmission Date: 20181010
  Serious: Yes (Hospitalization, Other)
  Sender: FDA-Public Use
  Company Number: DE-ABBVIE-18K-062-2406579-00

PATIENT
  Age: 68 Year
  Sex: Male

DRUGS (3)
  1. MADOPAR DEPOT [Concomitant]
     Active Substance: BENSERAZIDE HYDROCHLORIDE\LEVODOPA
     Indication: PRODUCT USED FOR UNKNOWN INDICATION
     Dosage: NOCTE
     Route: 065
  2. DUODOPA [Suspect]
     Active Substance: CARBIDOPA\LEVODOPA
     Indication: PARKINSON^S DISEASE
     Dosage: INITIAL DOSE ADJUSTMENT PHASE
     Route: 050
     Dates: start: 20180619, end: 201806
  3. DUODOPA [Suspect]
     Active Substance: CARBIDOPA\LEVODOPA
     Dosage: MD 7 ML CRD 2 .2ML/H ED 1 ML
     Route: 050
     Dates: start: 20180628

REACTIONS (7)
  - Mechanical ileus [Recovered/Resolved]
  - Abdominal hernia [Unknown]
  - Inguinal hernia gangrenous [Recovering/Resolving]
  - Constipation [Not Recovered/Not Resolved]
  - Fall [Unknown]
  - Drug ineffective [Not Recovered/Not Resolved]
  - Intestinal operation [Unknown]

NARRATIVE: CASE EVENT DATE: 20180628
